FAERS Safety Report 14390897 (Version 1)
Quarter: 2018Q1

REPORT INFORMATION
  Report Type: Spontaneous
  Country: US (occurrence: US)
  Receive Date: 20180116
  Receipt Date: 20180116
  Transmission Date: 20180509
  Serious: No
  Sender: FDA-Public Use
  Company Number: PHEH2018US001428

PATIENT
  Sex: Female

DRUGS (1)
  1. AMITRIPTYLINE HCL TABLETS USP [Suspect]
     Active Substance: AMITRIPTYLINE HYDROCHLORIDE
     Indication: PRODUCT USED FOR UNKNOWN INDICATION
     Dosage: 0.5 DF (5 MG), UNK
     Route: 048

REACTIONS (6)
  - Eating disorder [Unknown]
  - Dysgeusia [Unknown]
  - Insomnia [Unknown]
  - Fatigue [Unknown]
  - Oral discomfort [Unknown]
  - Wrong technique in product usage process [Unknown]
